FAERS Safety Report 7342950-2 (Version None)
Quarter: 2011Q1

REPORT INFORMATION
  Report Type: 
  Country: None (occurrence: None)
  Receive Date: 20110310
  Receipt Date: 20110224
  Transmission Date: 20110831
  Serious: Yes (Hospitalization)
  Sender: FDA-Public Use
  Company Number: PHHY2010DE83830

PATIENT
  Sex: Male
  Weight: 72 kg

DRUGS (7)
  1. ASPIRIN [Concomitant]
     Indication: CORONARY ARTERY DISEASE
  2. BISOPROLOL FUMARATE [Concomitant]
  3. TASIGNA [Suspect]
     Indication: CHRONIC MYELOID LEUKAEMIA
     Dosage: 800 MG/DAY
     Route: 048
     Dates: start: 20101119, end: 20101130
  4. DELIX [Concomitant]
  5. DIGITOXIN [Concomitant]
     Indication: CORONARY ARTERY DISEASE
  6. PROTAPHANE [Concomitant]
     Indication: DIABETES MELLITUS
  7. HUMALOG [Concomitant]
     Indication: DIABETES MELLITUS

REACTIONS (5)
  - RESPIRATORY FAILURE [None]
  - PYREXIA [None]
  - DYSPNOEA [None]
  - ACUTE HEPATIC FAILURE [None]
  - PNEUMONIA [None]
